FAERS Safety Report 20336232 (Version 1)
Quarter: 2022Q1

REPORT INFORMATION
  Report Type: Spontaneous
  Country: US (occurrence: None)
  Receive Date: 20220114
  Receipt Date: 20220114
  Transmission Date: 20220423
  Serious: No
  Sender: FDA-Public Use
  Company Number: None

PATIENT
  Age: 62 Year
  Sex: Female

DRUGS (1)
  1. AVASTIN [Suspect]
     Active Substance: BEVACIZUMAB
     Indication: Neovascular age-related macular degeneration
     Dosage: OTHER FREQUENCY : EVERY 28 DAYS;?
     Route: 047
     Dates: start: 20210713

REACTIONS (3)
  - Ocular hyperaemia [None]
  - Headache [None]
  - Ocular hyperaemia [None]

NARRATIVE: CASE EVENT DATE: 20220111
